FAERS Safety Report 11127365 (Version 1)
Quarter: 2015Q2

REPORT INFORMATION
  Report Type: Report from Study
  Country: US (occurrence: None)
  Receive Date: 20150519
  Receipt Date: 20150519
  Transmission Date: 20150821
  Serious: Yes (Other)
  Sender: FDA-Public Use
  Company Number: 2014SA062040

PATIENT
  Age: 57 Year
  Sex: Female

DRUGS (2)
  1. COPAXONE [Concomitant]
     Active Substance: GLATIRAMER ACETATE
  2. AUBAGIO [Suspect]
     Active Substance: TERIFLUNOMIDE
     Indication: RELAPSING-REMITTING MULTIPLE SCLEROSIS
     Route: 048
     Dates: start: 20140201, end: 20140506

REACTIONS (16)
  - Abasia [None]
  - Multiple sclerosis relapse [None]
  - Muscular weakness [None]
  - Muscle tightness [None]
  - Dyskinesia [None]
  - Tendon disorder [None]
  - Fall [None]
  - Neuropathy peripheral [None]
  - Impaired work ability [None]
  - Contusion [None]
  - Fatigue [None]
  - Peripheral coldness [None]
  - Memory impairment [None]
  - Treatment noncompliance [None]
  - Balance disorder [None]
  - Muscle disorder [None]
